FAERS Safety Report 9456889 (Version 1)
Quarter: 2013Q3

REPORT INFORMATION
  Report Type: Spontaneous
  Country: US (occurrence: None)
  Receive Date: 20130809
  Receipt Date: 20130809
  Transmission Date: 20140515
  Serious: Yes (Other)
  Sender: FDA-Public Use
  Company Number: 149898

PATIENT
  Age: 1 Year
  Sex: Female
  Weight: 7 kg

DRUGS (1)
  1. DIPYRIDAMOLE [Suspect]
     Indication: ANTIPLATELET THERAPY

REACTIONS (2)
  - Coagulation time prolonged [None]
  - Procedural haemorrhage [None]
